FAERS Safety Report 9901689 (Version 1)
Quarter: 2014Q1

REPORT INFORMATION
  Report Type: Spontaneous
  Country: PR (occurrence: PR)
  Receive Date: 20140217
  Receipt Date: 20140217
  Transmission Date: 20141002
  Serious: No
  Sender: FDA-Public Use
  Company Number: PR-BAYER-2014-024388

PATIENT
  Sex: 0

DRUGS (1)
  1. GADAVIST [Suspect]
     Indication: NUCLEAR MAGNETIC RESONANCE IMAGING BRAIN
     Dosage: 705 ML, ONCE WITH SALINE
     Route: 042
     Dates: start: 20131210, end: 20131210

REACTIONS (1)
  - Urticaria [Recovered/Resolved]
